FAERS Safety Report 9303748 (Version 1)
Quarter: 2013Q2

REPORT INFORMATION
  Report Type: Spontaneous
  Country: CN (occurrence: CN)
  Receive Date: 20130522
  Receipt Date: 20130522
  Transmission Date: 20140414
  Serious: Yes (Other)
  Sender: FDA-Public Use
  Company Number: CN-ASTRAZENECA-2013SE35599

PATIENT
  Age: 20439 Day
  Sex: Male
  Weight: 64 kg

DRUGS (6)
  1. ROSUVASTATIN [Suspect]
     Indication: ANGINA PECTORIS
     Route: 048
     Dates: start: 20120106, end: 20120110
  2. SIMVASTATIN [Suspect]
     Indication: ARTERIOSCLEROSIS
     Route: 048
     Dates: start: 20120102, end: 20120105
  3. SIMVASTATIN [Suspect]
     Indication: ANGINA PECTORIS
     Route: 048
     Dates: start: 20120102, end: 20120105
  4. SIMVASTATIN [Suspect]
     Indication: CORONARY ARTERY DISEASE
     Route: 048
     Dates: start: 20120102, end: 20120105
  5. DILTIAZEM [Suspect]
     Indication: PLAGUE
     Dates: start: 20120102
  6. DILTIAZEM [Suspect]
     Indication: ARTERIOSPASM CORONARY
     Dates: start: 20120102

REACTIONS (1)
  - Hepatic function abnormal [Recovered/Resolved]
